FAERS Safety Report 8781347 (Version 1)
Quarter: 2012Q4

REPORT INFORMATION
  Report Type: Report from Study
  Country: US (occurrence: US)
  Receive Date: 20120913
  Receipt Date: 20120913
  Transmission Date: 20130627
  Serious: No
  Sender: FDA-Public Use
  Company Number: US-VERTEX PHARMACEUTICAL INC.-AE-2012-006814

PATIENT

DRUGS (6)
  1. INCIVEK [Suspect]
     Indication: HEPATITIS C
     Route: 048
     Dates: start: 20120426
  2. PEGASYS [Concomitant]
     Indication: HEPATITIS C
     Dates: start: 20120426
  3. RIBAVIRIN [Concomitant]
     Indication: HEPATITIS C
     Route: 048
     Dates: start: 20120426
  4. ASMANEX [Concomitant]
  5. ALBUTEROL [Concomitant]
  6. NASONEX [Concomitant]

REACTIONS (5)
  - Influenza like illness [Unknown]
  - Myalgia [Unknown]
  - Acne [Not Recovered/Not Resolved]
  - Fatigue [Unknown]
  - Pruritus [Not Recovered/Not Resolved]
